FAERS Safety Report 9827405 (Version 1)
Quarter: 2014Q1

REPORT INFORMATION
  Report Type: Spontaneous
  Country: US (occurrence: US)
  Receive Date: 20140117
  Receipt Date: 20140117
  Transmission Date: 20141002
  Serious: No
  Sender: FDA-Public Use
  Company Number: US-GILEAD-2014-0092185

PATIENT
  Sex: Female

DRUGS (1)
  1. LETAIRIS [Suspect]
     Indication: PRODUCT USED FOR UNKNOWN INDICATION
     Dosage: 5 MG, QD
     Route: 065
     Dates: start: 20121009

REACTIONS (9)
  - Malaise [Unknown]
  - Wheezing [Unknown]
  - Weight increased [Unknown]
  - Productive cough [Unknown]
  - Unevaluable event [Unknown]
  - Nasal congestion [Unknown]
  - Dyspnoea [Unknown]
  - Face oedema [Unknown]
  - Oedema [Unknown]
